FAERS Safety Report 7883775-9 (Version None)
Quarter: 2011Q4

REPORT INFORMATION
  Report Type: 
  Country: None (occurrence: None)
  Receive Date: 20111102
  Receipt Date: 20111026
  Transmission Date: 20120403
  Serious: Yes (Hospitalization, Other)
  Sender: FDA-Public Use
  Company Number: IE-BAYER-2011-084814

PATIENT
  Age: 81 Year
  Sex: Male
  Weight: 83.8 kg

DRUGS (7)
  1. SORAFENIB (RAF KINASE INHIBITOR) [Suspect]
     Indication: HEPATIC NEOPLASM MALIGNANT
     Dosage: 200 MG, BD
     Route: 048
     Dates: start: 20110616, end: 20111014
  2. TRANSDERM-NITRO [Concomitant]
  3. NEXIUM [Concomitant]
     Dosage: 40 MG, QD
  4. DIAMICRON MR [Concomitant]
     Dosage: 30 MG, QD
  5. ALLOPURINOL [Concomitant]
     Dosage: 100 MG, QD
  6. CRESTOR [Concomitant]
     Dosage: 10 MG, QD
  7. BISOPROLOL [Concomitant]
     Dosage: 5 MG, QD

REACTIONS (4)
  - DYSPNOEA EXERTIONAL [None]
  - ANAEMIA [None]
  - MALAISE [None]
  - ANGINA PECTORIS [None]
